FAERS Safety Report 14032986 (Version 2)
Quarter: 2017Q4

REPORT INFORMATION
  Report Type: Report from Study
  Country: NL (occurrence: NL)
  Receive Date: 20171003
  Receipt Date: 20171005
  Transmission Date: 20180321
  Serious: Yes (Other)
  Sender: FDA-Public Use
  Company Number: NL-AMGEN-NLDSL2017149248

PATIENT
  Age: 47 Year
  Sex: Female

DRUGS (7)
  1. PREDNISON [Concomitant]
     Active Substance: PREDNISONE
     Dosage: 25 MG, AFTER CHEMO (WEEK 2)
  2. PREDNISON [Concomitant]
     Active Substance: PREDNISONE
     Dosage: 30 MG, AFTER CHEMO (WEEK 3)
  3. PREDNISON [Concomitant]
     Active Substance: PREDNISONE
     Dosage: 30 MG, AFTER CHEMO (WEEK 1)
  4. NEULASTA [Suspect]
     Active Substance: PEGFILGRASTIM
     Indication: NEUTROPENIA
     Dosage: 0.6 ML, Q3WK
     Route: 058
  5. OMEPRAZOL [Concomitant]
     Active Substance: OMEPRAZOLE
     Dosage: UNK (40 X 1X)
  6. PARACETAMOL [Concomitant]
     Active Substance: ACETAMINOPHEN
     Dosage: UNK (X 4X2)
  7. MELOXICAM. [Concomitant]
     Active Substance: MELOXICAM
     Dosage: UNK (7,5 MG X 2X)

REACTIONS (2)
  - Pulmonary pain [Unknown]
  - Pyrexia [Unknown]

NARRATIVE: CASE EVENT DATE: 20170810
